FAERS Safety Report 14699782 (Version 2)
Quarter: 2018Q3

REPORT INFORMATION
  Report Type: Spontaneous
  Country: ES (occurrence: ES)
  Receive Date: 20180330
  Receipt Date: 20180716
  Transmission Date: 20181010
  Serious: Yes (Hospitalization)
  Sender: FDA-Public Use
  Company Number: ES-PFIZER INC-2018131019

PATIENT
  Age: 62 Year
  Sex: Male
  Weight: 91 kg

DRUGS (16)
  1. TRANKIMAZIN [Concomitant]
     Active Substance: ALPRAZOLAM
     Dosage: UNK
  2. DOLOCATIL [Concomitant]
     Active Substance: ACETAMINOPHEN
     Dosage: UNK
  3. ATORVASTATIN [Concomitant]
     Active Substance: ATORVASTATIN
     Dosage: UNK
  4. ENTRESTO [Concomitant]
     Active Substance: SACUBITRIL\VALSARTAN
     Dosage: UNK
  5. SINTROM [Concomitant]
     Active Substance: ACENOCOUMAROL
     Dosage: UNK
  6. SOTAPOR [Concomitant]
     Dosage: UNK
     Dates: start: 2010
  7. HIDROFEROL [Concomitant]
     Active Substance: CALCIFEDIOL
     Dosage: UNK
  8. TRANGOREX [Suspect]
     Active Substance: AMIODARONE HYDROCHLORIDE
     Indication: VENTRICULAR ARRHYTHMIA
     Dosage: 200 MG, 1X/DAY
     Route: 048
     Dates: start: 2010
  9. HIDROALTESONA [Concomitant]
     Active Substance: HYDROCORTISONE
     Dosage: UNK
  10. OMEPRAZOLE. [Concomitant]
     Active Substance: OMEPRAZOLE
     Dosage: UNK
  11. EUTIROX [Concomitant]
     Active Substance: LEVOTHYROXINE SODIUM
     Dosage: UNK
  12. ROCALTROL [Concomitant]
     Active Substance: CALCITRIOL
     Dosage: UNK
  13. ZYLORIC [Concomitant]
     Active Substance: ALLOPURINOL
     Dosage: UNK
  14. FUROSEMIDA [Concomitant]
     Active Substance: FUROSEMIDE
     Dosage: UNK
  15. TESTOGEL [Concomitant]
     Active Substance: TESTOSTERONE
     Dosage: UNK
  16. TROMALYT [Concomitant]
     Active Substance: ASPIRIN
     Dosage: UNK

REACTIONS (2)
  - Pleural effusion [Not Recovered/Not Resolved]
  - Pleural thickening [Not Recovered/Not Resolved]

NARRATIVE: CASE EVENT DATE: 20171227
